FAERS Safety Report 20680421 (Version 1)
Quarter: 2022Q2

REPORT INFORMATION
  Report Type: Spontaneous
  Country: CN (occurrence: None)
  Receive Date: 20220406
  Receipt Date: 20220406
  Transmission Date: 20220721
  Serious: Yes (Other)
  Sender: FDA-Public Use
  Company Number: CN-Eisai Medical Research-EC-2022-111864

PATIENT
  Age: 54 Year
  Sex: Male
  Weight: 73 kg

DRUGS (16)
  1. LENVIMA [Suspect]
     Active Substance: LENVATINIB
     Indication: Gallbladder cancer
     Route: 048
     Dates: start: 20220317, end: 20220321
  2. FLUOROURACIL [Concomitant]
     Active Substance: FLUOROURACIL
     Indication: Gallbladder cancer
     Route: 041
     Dates: start: 20220209, end: 20220209
  3. FLUOROURACIL [Concomitant]
     Active Substance: FLUOROURACIL
     Route: 041
     Dates: start: 20220227, end: 20220227
  4. FLUOROURACIL [Concomitant]
     Active Substance: FLUOROURACIL
     Route: 041
     Dates: start: 20220317, end: 20220317
  5. SODIUM CHLORIDE [Concomitant]
     Active Substance: SODIUM CHLORIDE
     Indication: Vehicle solution use
     Route: 041
     Dates: start: 20220209, end: 20220209
  6. SODIUM CHLORIDE [Concomitant]
     Active Substance: SODIUM CHLORIDE
     Route: 041
     Dates: start: 20220227, end: 20220227
  7. SODIUM CHLORIDE [Concomitant]
     Active Substance: SODIUM CHLORIDE
     Route: 041
     Dates: start: 20220317, end: 20220317
  8. OXALIPLATIN [Concomitant]
     Active Substance: OXALIPLATIN
     Indication: Gallbladder cancer
     Route: 041
     Dates: start: 20220209, end: 20220209
  9. OXALIPLATIN [Concomitant]
     Active Substance: OXALIPLATIN
     Route: 041
     Dates: start: 20220227, end: 20220227
  10. OXALIPLATIN [Concomitant]
     Active Substance: OXALIPLATIN
     Route: 041
     Dates: start: 20220317, end: 20220317
  11. DEXTROSE [Concomitant]
     Active Substance: DEXTROSE
     Indication: Vehicle solution use
     Route: 041
     Dates: start: 20220209, end: 20220209
  12. DEXTROSE [Concomitant]
     Active Substance: DEXTROSE
     Route: 041
     Dates: start: 20220227, end: 20220227
  13. DEXTROSE [Concomitant]
     Active Substance: DEXTROSE
     Route: 041
     Dates: start: 20220317, end: 20220317
  14. PENPULIMAB [Concomitant]
     Active Substance: PENPULIMAB
     Indication: Gallbladder cancer
     Route: 041
     Dates: start: 20220209, end: 20220209
  15. PENPULIMAB [Concomitant]
     Active Substance: PENPULIMAB
     Route: 041
     Dates: start: 20220227, end: 20220227
  16. PENPULIMAB [Concomitant]
     Active Substance: PENPULIMAB
     Route: 041
     Dates: start: 20220317, end: 20220317

REACTIONS (5)
  - Arrhythmia [Recovering/Resolving]
  - Atrial fibrillation [Recovering/Resolving]
  - Chest discomfort [Recovering/Resolving]
  - Gait disturbance [Recovering/Resolving]
  - Asthenia [Recovering/Resolving]

NARRATIVE: CASE EVENT DATE: 20220321
